FAERS Safety Report 9146490 (Version 1)
Quarter: 2013Q1

REPORT INFORMATION
  Report Type: Spontaneous
  Country: US (occurrence: None)
  Receive Date: 20130227
  Receipt Date: 20130227
  Transmission Date: 20140127
  Serious: No
  Sender: FDA-Public Use
  Company Number: None

PATIENT
  Sex: Male

DRUGS (2)
  1. REVLIMID [Suspect]
     Indication: PLASMA CELL MYELOMA
     Dates: end: 201205
  2. THALIDOMIDE [Suspect]
     Indication: PLASMA CELL MYELOMA

REACTIONS (2)
  - Hypersensitivity [None]
  - Lung disorder [None]
